FAERS Safety Report 6966330-4 (Version None)
Quarter: 2010Q3

REPORT INFORMATION
  Report Type: 
  Country: None (occurrence: None)
  Receive Date: 20100903
  Receipt Date: 20100826
  Transmission Date: 20110219
  Serious: Yes (Hospitalization)
  Sender: FDA-Public Use
  Company Number: US-ROCHE-700377

PATIENT
  Sex: Male
  Weight: 62 kg

DRUGS (19)
  1. BEVACIZUMAB [Suspect]
     Route: 042
     Dates: start: 20091217, end: 20100218
  2. BEVACIZUMAB [Suspect]
     Route: 042
     Dates: start: 20100311, end: 20100415
  3. PEMETREXED [Suspect]
     Route: 042
     Dates: start: 20091217, end: 20100218
  4. PEMETREXED [Suspect]
     Route: 042
     Dates: start: 20100311, end: 20100415
  5. CARBOPLATIN [Suspect]
     Dosage: DOSE: 6 AUC
     Route: 042
     Dates: start: 20091217, end: 20100218
  6. FOLIC ACID [Concomitant]
     Dates: start: 20091023
  7. VITAMIN B-12 [Concomitant]
     Dates: start: 20091209
  8. LISINOPRIL [Concomitant]
  9. AMLODIPINE [Concomitant]
  10. SIMVASTATIN [Concomitant]
  11. MEGACE [Concomitant]
     Dates: start: 20091209
  12. CALCIUM [Concomitant]
     Dates: start: 20091023
  13. VICODIN [Concomitant]
     Dates: start: 20091023
  14. COMPAZINE [Concomitant]
     Dates: start: 20091217
  15. NEULASTA [Concomitant]
     Dates: start: 20091218
  16. WELLBUTRIN [Concomitant]
     Dates: start: 20100128
  17. SLOW-MAG [Concomitant]
     Dates: start: 20100107
  18. KYTRIL [Concomitant]
     Dates: start: 20091217
  19. DEXAMETHASONE [Concomitant]
     Dates: start: 20091216

REACTIONS (5)
  - ANAEMIA [None]
  - DEHYDRATION [None]
  - DYSPHAGIA [None]
  - MALNUTRITION [None]
  - PNEUMONIA [None]
